FAERS Safety Report 25288295 (Version 1)
Quarter: 2025Q2

REPORT INFORMATION
  Report Type: Spontaneous
  Country: US (occurrence: None)
  Receive Date: 20250508
  Receipt Date: 20250508
  Transmission Date: 20250716
  Serious: Yes (Hospitalization)
  Sender: FDA-CTU
  Company Number: None

PATIENT
  Age: 47 Year
  Sex: Female

DRUGS (1)
  1. LAPINE T-LYMPHOCYTE IMMUNE GLOBULIN [Suspect]
     Active Substance: LAPINE T-LYMPHOCYTE IMMUNE GLOBULIN
     Dosage: FREQUENCY : DAILY;?
     Route: 042
     Dates: start: 20250209, end: 20250210

REACTIONS (2)
  - Thrombocytopenia [None]
  - Post procedural complication [None]

NARRATIVE: CASE EVENT DATE: 20250213
